FAERS Safety Report 4938752-4 (Version None)
Quarter: 2006Q1

REPORT INFORMATION
  Report Type: 
  Country: None (occurrence: None)
  Receive Date: 20060127
  Receipt Date: 20051101
  Transmission Date: 20060701
  Serious: Yes (Other)
  Sender: FDA-Public Use
  Company Number: 2005150752

PATIENT
  Age: 59 Year
  Sex: Female
  Weight: 67.586 kg

DRUGS (9)
  1. LYRICA [Suspect]
     Dosage: 150 MG (75 MG, 2 IN 1 D), ORAL
     Route: 048
     Dates: start: 20051001
  2. TOPAMAX [Suspect]
     Dosage: 75 MG (25 MG, 3 IN 1 D), ORAL
     Route: 048
  3. CENTRUM A TO ZINC (MINERALS NOS, VITAMINS NOS) [Concomitant]
  4. COZAAR [Concomitant]
  5. LIPITOR [Concomitant]
  6. METFORMIN XR (METFORMIN) [Concomitant]
  7. PREVACID [Concomitant]
  8. HYDROCODONE BITARTRATE + ACETAMINOPHEN [Concomitant]
  9. AMBIEN [Concomitant]

REACTIONS (8)
  - DISTURBANCE IN ATTENTION [None]
  - DRUG INTERACTION [None]
  - FATIGUE [None]
  - FEELING ABNORMAL [None]
  - INCREASED APPETITE [None]
  - POLLAKIURIA [None]
  - SPEECH DISORDER [None]
  - WEIGHT INCREASED [None]
